FAERS Safety Report 5602080-4 (Version None)
Quarter: 2008Q1

REPORT INFORMATION
  Report Type: 
  Country: None (occurrence: None)
  Receive Date: 20080122
  Receipt Date: 20080111
  Transmission Date: 20080703
  Serious: Yes (Hospitalization)
  Sender: FDA-Public Use
  Company Number: MEDI-0006448

PATIENT

DRUGS (1)
  1. SYNAGIS [Suspect]
     Dosage: INTRAVENOUS
     Route: 042

REACTIONS (1)
  - APNOEA [None]
